FAERS Safety Report 9700287 (Version 1)
Quarter: 2013Q4

REPORT INFORMATION
  Report Type: Spontaneous
  Country: GR (occurrence: GR)
  Receive Date: 20131121
  Receipt Date: 20131121
  Transmission Date: 20140711
  Serious: Yes (Other)
  Sender: FDA-Public Use
  Company Number: GR-JNJFOC-20131108600

PATIENT
  Age: 44 Year
  Sex: Female

DRUGS (3)
  1. REMICADE [Suspect]
     Indication: CROHN^S DISEASE
     Route: 042
     Dates: start: 200903
  2. REMICADE [Suspect]
     Indication: CROHN^S DISEASE
     Route: 042
     Dates: start: 1998
  3. CORTISONE [Concomitant]
     Indication: PREMEDICATION
     Route: 065

REACTIONS (2)
  - Renal failure acute [Recovering/Resolving]
  - Psoriasis [Recovering/Resolving]
